FAERS Safety Report 5409991-3 (Version None)
Quarter: 2007Q3

REPORT INFORMATION
  Report Type: 
  Country: None (occurrence: None)
  Receive Date: 20070809
  Receipt Date: 20070728
  Transmission Date: 20080115
  Serious: Yes (Other)
  Sender: FDA-Public Use
  Company Number: US-PFIZER INC-2007063458

PATIENT
  Sex: Male
  Weight: 90.7 kg

DRUGS (18)
  1. CHANTIX [Suspect]
     Indication: SMOKING CESSATION THERAPY
  2. OXYCONTIN [Concomitant]
  3. PERCOCET [Concomitant]
  4. XANAX [Concomitant]
  5. ISOSORBIDE DINITRATE [Concomitant]
  6. CYMBALTA [Concomitant]
  7. SOMA [Concomitant]
  8. ALL OTHER THERAPEUTIC PRODUCTS [Concomitant]
  9. PAXIL [Concomitant]
  10. NEXIUM [Concomitant]
  11. CRESTOR [Concomitant]
  12. TRICOR [Concomitant]
  13. SPIRIVA [Concomitant]
  14. RESTORIL [Concomitant]
  15. XOPENEX [Concomitant]
  16. PLAVIX [Concomitant]
  17. GABAPENTIN [Concomitant]
  18. OXYGEN [Concomitant]

REACTIONS (7)
  - DIARRHOEA [None]
  - DRUG THERAPY [None]
  - DYSPNOEA [None]
  - HYPERHIDROSIS [None]
  - LOSS OF CONSCIOUSNESS [None]
  - MUSCLE SPASMS [None]
  - VOMITING [None]
